FAERS Safety Report 6201432-1 (Version None)
Quarter: 2009Q2

REPORT INFORMATION
  Report Type: 
  Country: None (occurrence: None)
  Receive Date: 20090526
  Receipt Date: 20090520
  Transmission Date: 20091009
  Serious: Yes (Death)
  Sender: FDA-Public Use
  Company Number: PHHY2009BR19600

PATIENT

DRUGS (1)
  1. SYNTOCINON [Suspect]

REACTIONS (2)
  - DEATH [None]
  - DRUG EXPOSURE VIA BREAST MILK [None]
